FAERS Safety Report 24834398 (Version 2)
Quarter: 2025Q2

REPORT INFORMATION
  Report Type: Spontaneous
  Country: GB (occurrence: GB)
  Receive Date: 20250113
  Receipt Date: 20250410
  Transmission Date: 20250716
  Serious: Yes (Death, Other)
  Sender: BRISTOL MYERS SQUIBB
  Company Number: GB-BRISTOL-MYERS SQUIBB COMPANY-2025-003829

PATIENT
  Sex: Female

DRUGS (1)
  1. OPDUALAG [Suspect]
     Active Substance: NIVOLUMAB\RELATLIMAB-RMBW
     Indication: Product used for unknown indication

REACTIONS (4)
  - Sepsis [Fatal]
  - Myocarditis [Unknown]
  - Myasthenia gravis [Unknown]
  - Immunosuppression [Unknown]
